FAERS Safety Report 8315692 (Version 2)
Quarter: 2012Q4

REPORT INFORMATION
  Report Type: Report from Study
  Country: DE (occurrence: DE)
  Receive Date: 20111229
  Receipt Date: 20120831
  Transmission Date: 20130627
  Serious: Yes (Hospitalization)
  Sender: FDA-Public Use
  Company Number: DE-ROCHE-1025717

PATIENT
  Age: 76 Year
  Sex: Female

DRUGS (5)
  1. RANIBIZUMAB [Suspect]
     Indication: AGE-RELATED MACULAR DEGENERATION
     Dosage: Injected into the right eye. Last dose prior to SAE: 13/Mar/2011
     Route: 050
     Dates: start: 20110304, end: 20110304
  2. RANIBIZUMAB [Suspect]
     Dosage: Injected into the right eye. Last dose prior to SAE: 13/Mar/2011
     Route: 050
     Dates: start: 20110313, end: 20110818
  3. ATACAND [Concomitant]
  4. METFORMIN [Concomitant]
  5. CANDESARTAN [Concomitant]

REACTIONS (2)
  - Transient ischaemic attack [Recovered/Resolved]
  - Inappropriate schedule of drug administration [Unknown]
